FAERS Safety Report 7280490-X (Version None)
Quarter: 2011Q1

REPORT INFORMATION
  Report Type: 
  Country: None (occurrence: None)
  Receive Date: 20110208
  Receipt Date: 20110207
  Transmission Date: 20110831
  Serious: Yes (Other)
  Sender: FDA-Public Use
  Company Number: US-ROCHE-757962

PATIENT

DRUGS (1)
  1. ACCUTANE [Suspect]
     Route: 065
     Dates: start: 19850101, end: 19860101

REACTIONS (1)
  - IRRITABLE BOWEL SYNDROME [None]
